FAERS Safety Report 6142733-5 (Version None)
Quarter: 2009Q2

REPORT INFORMATION
  Report Type: 
  Country: None (occurrence: None)
  Receive Date: 20090403
  Receipt Date: 20090327
  Transmission Date: 20091009
  Serious: Yes (Other)
  Sender: FDA-Public Use
  Company Number: IE-ASTRAZENECA-2009GB00778

PATIENT
  Age: 40 Year
  Sex: Male

DRUGS (4)
  1. CRESTOR [Suspect]
     Indication: LIPIDS ABNORMAL
     Route: 048
     Dates: start: 20090227, end: 20090304
  2. INSULIN [Concomitant]
  3. DIOVAN 160MG FILM-COATED TABLETS [Concomitant]
  4. ASPIRIN [Concomitant]

REACTIONS (2)
  - MUSCULOSKELETAL STIFFNESS [None]
  - MYALGIA [None]
